FAERS Safety Report 6743218-5 (Version None)
Quarter: 2010Q2

REPORT INFORMATION
  Report Type: 
  Country: None (occurrence: None)
  Receive Date: 20100527
  Receipt Date: 20100519
  Transmission Date: 20101027
  Serious: Yes (Other)
  Sender: FDA-Public Use
  Company Number: DE-ASTRAZENECA-2010SE23021

PATIENT
  Sex: Male

DRUGS (7)
  1. NEXIUM [Suspect]
     Indication: GASTRITIS
     Route: 048
     Dates: start: 20100423
  2. NEXIUM [Suspect]
     Route: 048
     Dates: start: 20100430, end: 20100514
  3. NEXIUM [Suspect]
     Route: 048
  4. ASPIRIN [Concomitant]
  5. EBRANTIL [Concomitant]
  6. AMLODIPINE [Concomitant]
  7. SIMVASTATIN [Concomitant]

REACTIONS (4)
  - HEPATIC ENZYME INCREASED [None]
  - HEPATITIS [None]
  - JAUNDICE [None]
  - OCULAR ICTERUS [None]
